FAERS Safety Report 4990017-0 (Version None)
Quarter: 2006Q2

REPORT INFORMATION
  Report Type: 
  Country: None (occurrence: None)
  Receive Date: 20060427
  Receipt Date: 20060417
  Transmission Date: 20061013
  Serious: Yes (Death, Life-Threatening)
  Sender: FDA-Public Use
  Company Number: 200610461GDS

PATIENT
  Age: 82 Year
  Sex: Male
  Weight: 86.1834 kg

DRUGS (6)
  1. CIPROFLOXACIN [Suspect]
     Indication: UROSEPSIS
     Dosage: 800 MG, TOTAL DAILY, INTRAVENOUS
     Route: 042
     Dates: start: 20050711, end: 20050713
  2. GENTAMICIN [Concomitant]
  3. LASIX [Concomitant]
  4. MAGNESIUM-ROUGIER [Concomitant]
  5. OXAZEPAM [Concomitant]
  6. REMINYL [Concomitant]

REACTIONS (4)
  - BLOOD CREATINE PHOSPHOKINASE INCREASED [None]
  - BLOOD CREATININE INCREASED [None]
  - CHEST PAIN [None]
  - RENAL FAILURE ACUTE [None]
